FAERS Safety Report 5118716-0 (Version None)
Quarter: 2006Q4

REPORT INFORMATION
  Report Type: 
  Country: None (occurrence: None)
  Receive Date: 20061002
  Receipt Date: 20060706
  Transmission Date: 20070319
  Serious: Yes (Other)
  Sender: FDA-Public Use
  Company Number: US-ROCHE-454534

PATIENT
  Age: 16 Month
  Sex: Male

DRUGS (2)
  1. ACCUTANE [Suspect]
     Route: 048
     Dates: start: 20060515
  2. ACCUTANE [Suspect]
     Dosage: RESTARTED ON DAY 60
     Route: 048
     Dates: start: 20060707, end: 20060912

REACTIONS (5)
  - ANOREXIA [None]
  - BLOOD TRIGLYCERIDES INCREASED [None]
  - BONE MARROW TRANSPLANT [None]
  - GRAFT VERSUS HOST DISEASE [None]
  - RASH [None]
